FAERS Safety Report 9682984 (Version 3)
Quarter: 2014Q1

REPORT INFORMATION
  Report Type: Spontaneous
  Country: FR (occurrence: FR)
  Receive Date: 20131112
  Receipt Date: 20140116
  Transmission Date: 20141002
  Serious: Yes (Hospitalization)
  Sender: FDA-Public Use
  Company Number: FR-ASTRAZENECA-2013SE81456

PATIENT
  Age: 18760 Day
  Sex: Female

DRUGS (4)
  1. INEXIUM [Suspect]
     Indication: GASTRIC ULCER
     Route: 048
     Dates: start: 20131010, end: 20131017
  2. PARACETAMOL [Suspect]
     Indication: POSTOPERATIVE ANALGESIA
     Route: 048
     Dates: start: 20131010, end: 20131017
  3. KETOPROFENE BIOGARAN [Suspect]
     Indication: POSTOPERATIVE ANALGESIA
     Route: 048
     Dates: start: 20131010, end: 20131017
  4. TRAMADOL [Suspect]
     Indication: POSTOPERATIVE ANALGESIA
     Route: 048
     Dates: start: 20131010, end: 20131017

REACTIONS (2)
  - Urinary retention [Recovered/Resolved]
  - Feeling abnormal [Recovered/Resolved]
